FAERS Safety Report 5803054-0 (Version None)
Quarter: 2008Q2

REPORT INFORMATION
  Report Type: 
  Country: None (occurrence: None)
  Receive Date: 20080626
  Receipt Date: 20080410
  Transmission Date: 20081010
  Serious: Yes (Other)
  Sender: FDA-Public Use
  Company Number: A03200801467

PATIENT
  Age: 42 Year
  Sex: Male

DRUGS (4)
  1. AMBIEN CR [Suspect]
     Indication: SLEEP DISORDER
     Dosage: ORAL
     Route: 048
     Dates: start: 20080201, end: 20080301
  2. PANTOPRAZOLE SODIUM [Concomitant]
  3. CORTISONE [Concomitant]
  4. ALCOHOL [Concomitant]

REACTIONS (7)
  - ABNORMAL BEHAVIOUR [None]
  - AGITATION [None]
  - AMNESIA [None]
  - PSYCHOTIC DISORDER [None]
  - SOMNAMBULISM [None]
  - SUICIDAL IDEATION [None]
  - THERAPEUTIC RESPONSE DECREASED [None]
